FAERS Safety Report 6998708-7 (Version None)
Quarter: 2010Q3

REPORT INFORMATION
  Report Type: 
  Country: None (occurrence: None)
  Receive Date: 20100920
  Receipt Date: 20100615
  Transmission Date: 20110219
  Serious: No
  Sender: FDA-Public Use
  Company Number: US-ASTRAZENECA-2009SE32630

PATIENT
  Age: 36 Year
  Sex: Male
  Weight: 122.5 kg

DRUGS (9)
  1. SEROQUEL [Suspect]
     Indication: BIPOLAR DISORDER
     Route: 048
     Dates: start: 20020101
  2. HALDOL [Concomitant]
     Indication: BIPOLAR DISORDER
     Dates: start: 19880101, end: 20010101
  3. HALDOL [Concomitant]
     Indication: DEPRESSION
     Dates: start: 19880101, end: 20010101
  4. VYTORIN [Concomitant]
     Indication: BLOOD CHOLESTEROL INCREASED
  5. VYTORIN [Concomitant]
     Indication: HYPERLIPIDAEMIA
  6. VYTORIN [Concomitant]
     Indication: BLOOD TRIGLYCERIDES INCREASED
  7. ABILIFY [Concomitant]
     Dates: start: 20030101, end: 20040101
  8. RISPERDAL [Concomitant]
     Dates: start: 20040101, end: 20050101
  9. XANAX [Concomitant]
     Dates: start: 19890101, end: 20060101

REACTIONS (2)
  - HERNIA [None]
  - TYPE 2 DIABETES MELLITUS [None]
